FAERS Safety Report 5395560-0 (Version None)
Quarter: 2007Q3

REPORT INFORMATION
  Report Type: 
  Country: None (occurrence: None)
  Receive Date: 20070724
  Receipt Date: 20070710
  Transmission Date: 20080115
  Serious: Yes (Hospitalization)
  Sender: FDA-Public Use
  Company Number: GB-GENENTECH-244113

PATIENT
  Sex: Female

DRUGS (6)
  1. HERCEPTIN [Suspect]
     Indication: BREAST CANCER
     Dosage: 450 MG, UNK
     Route: 042
     Dates: start: 20060501
  2. FLUOROURACIL [Suspect]
     Indication: BREAST CANCER
     Dates: start: 20050601, end: 20051001
  3. EPIRUBICIN [Suspect]
     Indication: BREAST CANCER
     Dosage: UNK, UNK
     Dates: start: 20050601, end: 20051001
  4. CYCLOPHOSPHAMIDE [Suspect]
     Indication: BREAST CANCER
     Dates: start: 20050601, end: 20051001
  5. UNSPECIFIED MEDICATION [Concomitant]
     Indication: DRUG USE FOR UNKNOWN INDICATION
  6. TAXOTERE [Concomitant]
     Indication: DRUG USE FOR UNKNOWN INDICATION
     Dates: start: 20050601, end: 20051001

REACTIONS (1)
  - ACUTE MYELOID LEUKAEMIA [None]
